FAERS Safety Report 4661558-0 (Version None)
Quarter: 2005Q2

REPORT INFORMATION
  Report Type: 
  Country: None (occurrence: None)
  Receive Date: 20050502
  Receipt Date: 20050111
  Transmission Date: 20051028
  Serious: No
  Sender: FDA-Public Use
  Company Number: 200510246US

PATIENT
  Sex: Male

DRUGS (4)
  1. KETEK [Suspect]
  2. ASPIRIN [Concomitant]
  3. IBUPROFEN [Concomitant]
  4. ACETAMINOPHEN [Concomitant]

REACTIONS (1)
  - HEADACHE [None]
